FAERS Safety Report 6582691-2 (Version None)
Quarter: 2010Q1

REPORT INFORMATION
  Report Type: 
  Country: None (occurrence: None)
  Receive Date: 20100212
  Receipt Date: 20100212
  Transmission Date: 20100710
  Serious: No
  Sender: FDA-Public Use
  Company Number: None

PATIENT
  Age: 39 Year
  Sex: Male

DRUGS (2)
  1. PIPERACILLIN AND TAZOBACTAM [Suspect]
     Indication: INFECTION
     Dosage: 3.365 GM QID IV
     Route: 042
     Dates: start: 20091203, end: 20100114
  2. VANCOMYCIN [Suspect]
     Indication: INFECTION
     Dosage: 1 GM BID IV
     Route: 042
     Dates: start: 20091203, end: 20100114

REACTIONS (1)
  - LEUKOPENIA [None]
